FAERS Safety Report 12337879 (Version 3)
Quarter: 2016Q2

REPORT INFORMATION
  Report Type: Report from Study
  Country: CA (occurrence: CA)
  Receive Date: 20160505
  Receipt Date: 20160519
  Transmission Date: 20160815
  Serious: Yes (Hospitalization)
  Sender: FDA-Public Use
  Company Number: CA-ABBVIE-16P-028-1618693-00

PATIENT
  Sex: Female

DRUGS (1)
  1. HOLKIRA PAK [Suspect]
     Active Substance: DASABUVIR\OMBITASVIR\PARITAPREVIR\RITONAVIR
     Indication: HEPATITIS C
     Dosage: TWO -  12.5/75/50 MG TABLETS ONCE DAILY, ONE - 250 MG TABLET TWICE DAILY
     Route: 048
     Dates: start: 20160303, end: 201604

REACTIONS (2)
  - Malaise [Unknown]
  - Haemodialysis complication [Not Recovered/Not Resolved]
